FAERS Safety Report 10484512 (Version 3)
Quarter: 2014Q4

REPORT INFORMATION
  Report Type: Spontaneous
  Country: US (occurrence: None)
  Receive Date: 20140926
  Receipt Date: 20141103
  Transmission Date: 20150528
  Serious: Yes (Other)
  Sender: FDA-Public Use
  Company Number: CIO14062738

PATIENT
  Age: 70 Year
  Sex: Male
  Weight: 88.4 kg

DRUGS (8)
  1. ZZZQUIL NIGHTTIME SLEEP-AID [Suspect]
     Active Substance: DIPHENHYDRAMINE HYDROCHLORIDE
     Indication: INSOMNIA
     Dosage: 30 ML, 1 ONLY AT 10 PM
     Route: 048
     Dates: start: 20140827, end: 20140827
  2. METFORMIN [Concomitant]
     Active Substance: METFORMIN HYDROCHLORIDE
  3. MULTIVITAMIN? (ASCORBIC ACID, CALCIUM PANTOTHENATE, ERGOCALCIFEROL, NICOTINAMIDE, PYRIDOXINE HYDROCHLORIDE, RETINOL, RIBOFLAVIN, THIAMINE HYDROCHLORIDE) [Concomitant]
  4. TRAMADOL (TRAMADOL) [Suspect]
     Active Substance: TRAMADOL
     Indication: BACK PAIN
     Dosage: TAKEN 1 TRAMADOL AT 8PM, ORAL
     Route: 048
     Dates: start: 20140827, end: 20140827
  5. CARVEDILOL (CARVEDILOL) [Concomitant]
     Active Substance: CARVEDILOL
  6. LISINOPRIL (LISINOPRIL) [Concomitant]
     Active Substance: LISINOPRIL
  7. SIMVASTATIN. [Concomitant]
     Active Substance: SIMVASTATIN
  8. ZZZQUIL NIGHTTIME SLEEP-AID [Suspect]
     Active Substance: DIPHENHYDRAMINE HYDROCHLORIDE
     Indication: SLEEP APNOEA SYNDROME
     Dosage: 30 ML, 1 ONLY AT 10 PM
     Route: 048
     Dates: start: 20140827, end: 20140827

REACTIONS (19)
  - Hypersensitivity [None]
  - Skin swelling [None]
  - Skin disorder [None]
  - Rash generalised [None]
  - Renal failure [None]
  - Chest discomfort [None]
  - Pruritus generalised [None]
  - Off label use [None]
  - Dyspnoea [None]
  - Vomiting [None]
  - Nausea [None]
  - Restlessness [None]
  - Extra dose administered [None]
  - Labelled drug-drug interaction medication error [None]
  - Anxiety [None]
  - Intentional overdose [None]
  - Chromaturia [None]
  - Chest pain [None]
  - Dehydration [None]

NARRATIVE: CASE EVENT DATE: 20140827
